FAERS Safety Report 9632731 (Version 1)
Quarter: 2013Q4

REPORT INFORMATION
  Report Type: Report from Study
  Country: US (occurrence: US)
  Receive Date: 20131018
  Receipt Date: 20131018
  Transmission Date: 20140711
  Serious: Yes (Hospitalization, Other)
  Sender: FDA-Public Use
  Company Number: US-ABBVIE-13P-163-1156612-00

PATIENT
  Age: 51 Year
  Sex: Female
  Weight: 127.12 kg

DRUGS (16)
  1. HUMIRA [Suspect]
     Indication: RHEUMATOID ARTHRITIS
     Dates: start: 20060611
  2. BUMETANIDE [Concomitant]
     Indication: HYPERTENSION
  3. BUMETANIDE [Concomitant]
     Indication: OEDEMA
  4. PROCHLORPERAZINE [Concomitant]
     Indication: NAUSEA
  5. DEPAKOTE [Concomitant]
     Indication: CONVULSION
  6. FOLIC ACID [Concomitant]
     Indication: RHEUMATOID ARTHRITIS
  7. ALENDRONATE [Concomitant]
     Indication: OSTEOPOROSIS
  8. METHOTREXATE [Concomitant]
     Indication: RHEUMATOID ARTHRITIS
  9. CALCIUM [Concomitant]
     Indication: MINERAL SUPPLEMENTATION
  10. VITAMIN D3 [Concomitant]
     Indication: VITAMIN SUPPLEMENTATION
  11. ASPIRIN [Concomitant]
     Indication: CARDIOVASCULAR EVENT PROPHYLAXIS
  12. CLONIDINE [Concomitant]
     Indication: HYPERTENSION
  13. MINOCYCLINE [Concomitant]
     Indication: ANTIBIOTIC THERAPY
  14. CALCIPOTRIENE [Concomitant]
     Indication: PSORIASIS
  15. CLOBETASOL PROPIONATE [Concomitant]
     Indication: PSORIASIS
  16. NYSTATIN [Concomitant]
     Indication: ANTIFUNGAL PROPHYLAXIS

REACTIONS (4)
  - Chronic obstructive pulmonary disease [Not Recovered/Not Resolved]
  - Cellulitis [Not Recovered/Not Resolved]
  - Cellulitis [Recovered/Resolved]
  - Mobility decreased [Unknown]
